FAERS Safety Report 7238507-4 (Version None)
Quarter: 2011Q1

REPORT INFORMATION
  Report Type: 
  Country: None (occurrence: None)
  Receive Date: 20110119
  Receipt Date: 20110119
  Transmission Date: 20110831
  Serious: Yes (Death)
  Sender: FDA-Public Use
  Company Number: None

PATIENT
  Age: 55 Year

DRUGS (1)
  1. ENOXAPARIN SODIUM [Suspect]

REACTIONS (1)
  - DEATH [None]
